FAERS Safety Report 6501796-5 (Version None)
Quarter: 2009Q4

REPORT INFORMATION
  Report Type: 
  Country: None (occurrence: None)
  Receive Date: 20091216
  Receipt Date: 20091027
  Transmission Date: 20100525
  Serious: No
  Sender: FDA-Public Use
  Company Number: US-AMGEN-KDL368070

PATIENT
  Sex: Female
  Weight: 86.3 kg

DRUGS (1)
  1. ARANESP [Suspect]
     Indication: DIALYSIS
     Dates: start: 20090923

REACTIONS (2)
  - HYPOAESTHESIA [None]
  - SOMNOLENCE [None]
